FAERS Safety Report 16000410 (Version 3)
Quarter: 2019Q1

REPORT INFORMATION
  Report Type: Report from Study
  Country: US (occurrence: US)
  Receive Date: 20190225
  Receipt Date: 20190306
  Transmission Date: 20190418
  Serious: Yes (Hospitalization)
  Sender: FDA-Public Use
  Company Number: US-EISAI MEDICAL RESEARCH-EC-2019-052196

PATIENT
  Age: 53 Year
  Sex: Female

DRUGS (3)
  1. LENVIMA [Suspect]
     Active Substance: LENVATINIB
     Indication: RENAL CANCER
     Route: 048
     Dates: start: 20190207, end: 201902
  2. LENVIMA [Suspect]
     Active Substance: LENVATINIB
     Route: 048
     Dates: start: 2019
  3. AFINITOR [Concomitant]
     Active Substance: EVEROLIMUS

REACTIONS (8)
  - Intracranial pressure increased [Recovered/Resolved]
  - Mass [Recovering/Resolving]
  - Pruritus [Not Recovered/Not Resolved]
  - Femur fracture [Not Recovered/Not Resolved]
  - Breast pain [Not Recovered/Not Resolved]
  - Malignant neoplasm progression [Unknown]
  - Pain [Recovering/Resolving]
  - Nausea [Recovering/Resolving]

NARRATIVE: CASE EVENT DATE: 2019
